FAERS Safety Report 6868161-2 (Version None)
Quarter: 2010Q3

REPORT INFORMATION
  Report Type: 
  Country: None (occurrence: None)
  Receive Date: 20100722
  Receipt Date: 20080522
  Transmission Date: 20110219
  Serious: No
  Sender: FDA-Public Use
  Company Number: US-PFIZER INC-2008044983

PATIENT
  Sex: Female
  Weight: 66.4 kg

DRUGS (1)
  1. CHANTIX [Suspect]
     Indication: SMOKING CESSATION THERAPY
     Dates: end: 20080521

REACTIONS (3)
  - CHILLS [None]
  - EMOTIONAL DISORDER [None]
  - OROPHARYNGEAL PAIN [None]
